FAERS Safety Report 12836871 (Version 1)
Quarter: 2016Q4

REPORT INFORMATION
  Report Type: Spontaneous
  Country: US (occurrence: US)
  Receive Date: 20161011
  Receipt Date: 20161011
  Transmission Date: 20170207
  Serious: Yes (Other)
  Sender: FDA-Public Use
  Company Number: US-SAOL THERAPEUTICS-2016SAO00787

PATIENT
  Age: 54 Year
  Sex: Female

DRUGS (6)
  1. BUPIVACAINE. [Suspect]
     Active Substance: BUPIVACAINE
     Dosage: 5.7 MG, \DAY
  2. DILAUDID [Suspect]
     Active Substance: HYDROMORPHONE HYDROCHLORIDE
     Dosage: .65 UNK, UNK
  3. BUPIVACAINE. [Suspect]
     Active Substance: BUPIVACAINE
     Dosage: 4.1 MG, \DAY
     Route: 037
  4. COMPOUNDED BACLOFEN [Suspect]
     Active Substance: BACLOFEN
     Dosage: 61 ?G, \DAY
  5. COMPOUNDED BACLOFEN [Suspect]
     Active Substance: BACLOFEN
     Indication: POST LAMINECTOMY SYNDROME
     Dosage: 51 ?G, \DAY
     Route: 037
  6. DILAUDID [Suspect]
     Active Substance: HYDROMORPHONE HYDROCHLORIDE
     Dosage: .55 MG, \DAY
     Route: 037

REACTIONS (5)
  - Breast mass [Unknown]
  - Neuropathy peripheral [Not Recovered/Not Resolved]
  - Pain [Recovered/Resolved]
  - Drug withdrawal syndrome [Recovered/Resolved]
  - Device failure [Recovered/Resolved]

NARRATIVE: CASE EVENT DATE: 20160926
